FAERS Safety Report 9964134 (Version 2)
Quarter: 2014Q1

REPORT INFORMATION
  Report Type: Spontaneous
  Country: RU (occurrence: RU)
  Receive Date: 20140305
  Receipt Date: 20140311
  Transmission Date: 20141002
  Serious: Yes (Other)
  Sender: FDA-Public Use
  Company Number: RU-JNJFOC-20140217321

PATIENT
  Sex: 0

DRUGS (3)
  1. INFLIXIMAB, RECOMBINANT [Suspect]
     Indication: RHEUMATIC DISORDER
     Dosage: DOSE: 2.5 - 12 MG/KG
     Route: 042
  2. METHOTREXATE [Suspect]
     Indication: RHEUMATIC DISORDER
     Route: 065
  3. CYCLOSPORIN [Suspect]
     Indication: RHEUMATIC DISORDER
     Route: 065

REACTIONS (2)
  - Uveitis [Unknown]
  - Off label use [Unknown]
